FAERS Safety Report 9295013 (Version 1)
Quarter: 2013Q1

REPORT INFORMATION
  Report Type: Spontaneous
  Country: US (occurrence: None)
  Receive Date: 20121228
  Receipt Date: 20121228
  Transmission Date: 20140127
  Serious: Yes (Other)
  Sender: FDA-Public Use
  Company Number: M-12-038

PATIENT
  Age: 61 Year
  Sex: Male

DRUGS (3)
  1. TRIAMTERENE + HYDROCHLOROTHIAZIDE [Suspect]
     Indication: FLUID RETENTION
     Dosage: ONE CAPSULE PER DAY
     Dates: start: 20121106, end: 20121109
  2. ALBUTEROL [Concomitant]
  3. SPIRIVA NEBULIZER [Concomitant]

REACTIONS (3)
  - Headache [None]
  - Micturition urgency [None]
  - Incontinence [None]
